FAERS Safety Report 23685229 (Version 4)
Quarter: 2025Q1

REPORT INFORMATION
  Report Type: Report from Study
  Country: CL (occurrence: CL)
  Receive Date: 20240329
  Receipt Date: 20250115
  Transmission Date: 20250408
  Serious: Yes (Other)
  Sender: JOHNSON AND JOHNSON
  Company Number: CL-JNJFOC-20240371625

PATIENT
  Age: 68 Year
  Sex: Male

DRUGS (1)
  1. SIMPONI [Suspect]
     Active Substance: GOLIMUMAB
     Indication: Rheumatoid arthritis
     Route: 058
     Dates: start: 20221111, end: 20240318

REACTIONS (10)
  - Large intestine infection [Unknown]
  - Spinal fracture [Unknown]
  - Nasopharyngitis [Unknown]
  - Back pain [Unknown]
  - Pain [Unknown]
  - Vision blurred [Unknown]
  - Decreased immune responsiveness [Not Recovered/Not Resolved]
  - Bedridden [Unknown]
  - Tonsillitis [Unknown]
  - Headache [Unknown]

NARRATIVE: CASE EVENT DATE: 20240401
